FAERS Safety Report 9527287 (Version 2)
Quarter: 2013Q4

REPORT INFORMATION
  Report Type: Spontaneous
  Country: US (occurrence: US)
  Receive Date: 20130917
  Receipt Date: 20131015
  Transmission Date: 20140711
  Serious: Yes (Hospitalization, Other)
  Sender: FDA-Public Use
  Company Number: US-AMGEN-USASP2013064262

PATIENT
  Age: 90 Year
  Sex: Male

DRUGS (4)
  1. NPLATE [Suspect]
     Indication: IMMUNE THROMBOCYTOPENIC PURPURA
     Dosage: 10 MUG/KG, UNK
     Route: 065
     Dates: start: 20110815
  2. RITUXAN [Concomitant]
     Indication: IMMUNE THROMBOCYTOPENIC PURPURA
  3. CORTICOSTEROIDS [Concomitant]
     Indication: IMMUNE THROMBOCYTOPENIC PURPURA
  4. PREDNISONE [Concomitant]

REACTIONS (3)
  - Gallbladder perforation [Recovering/Resolving]
  - Therapeutic response decreased [Unknown]
  - Platelet count decreased [Unknown]
